FAERS Safety Report 7093047-0 (Version None)
Quarter: 2010Q4

REPORT INFORMATION
  Report Type: 
  Country: None (occurrence: None)
  Receive Date: 20101105
  Receipt Date: 20101105
  Transmission Date: 20110411
  Serious: No
  Sender: FDA-Public Use
  Company Number: None

PATIENT
  Age: 47 Year
  Sex: Male

DRUGS (4)
  1. DICLOFENAC SODIUM [Suspect]
     Indication: LIVER DISORDER
     Dates: start: 20080626, end: 20080725
  2. METFORMIN HCL [Suspect]
     Indication: LIVER DISORDER
     Dates: start: 20080520, end: 20080722
  3. ZIAC [Concomitant]
  4. GLUCOSAMINE [Concomitant]

REACTIONS (12)
  - ALANINE AMINOTRANSFERASE INCREASED [None]
  - ANGIOEDEMA [None]
  - ASPARTATE AMINOTRANSFERASE INCREASED [None]
  - BLOOD ALKALINE PHOSPHATASE INCREASED [None]
  - BLOOD BILIRUBIN INCREASED [None]
  - DIARRHOEA [None]
  - DRUG HYPERSENSITIVITY [None]
  - LIVER DISORDER [None]
  - NAUSEA [None]
  - PYREXIA [None]
  - URTICARIA [None]
  - VOMITING [None]
